FAERS Safety Report 6153819-3 (Version None)
Quarter: 2009Q2

REPORT INFORMATION
  Report Type: 
  Country: None (occurrence: None)
  Receive Date: 20090414
  Receipt Date: 20070504
  Transmission Date: 20091009
  Serious: Yes (Hospitalization, Other)
  Sender: FDA-Public Use
  Company Number: US-ASTRAZENECA-2006UW20839

PATIENT
  Age: 501 Month
  Sex: Female
  Weight: 86.2 kg

DRUGS (14)
  1. SEROQUEL [Suspect]
     Indication: DEPRESSION
     Route: 048
     Dates: start: 20031201, end: 20040701
  2. SEROQUEL [Suspect]
     Dosage: 50MG-200MG
     Route: 048
  3. GEODON [Concomitant]
     Dates: start: 20050801
  4. RISPERDAL [Concomitant]
     Dates: start: 20060901
  5. ZYPREXA [Concomitant]
     Dates: end: 20040201
  6. ELAVIL [Concomitant]
  7. TRAZODONE [Concomitant]
  8. LAMICTAL [Concomitant]
  9. AMBIEN [Concomitant]
  10. DEPAKOTE [Concomitant]
  11. LEXAPRO [Concomitant]
  12. BENADRYL [Concomitant]
  13. DICLOFENAC [Concomitant]
  14. METFORMIN HCL [Concomitant]

REACTIONS (6)
  - DIABETES MELLITUS [None]
  - HALLUCINATION, AUDITORY [None]
  - MAJOR DEPRESSION [None]
  - MULTIPLE INJURIES [None]
  - SCHIZOAFFECTIVE DISORDER [None]
  - SUICIDAL IDEATION [None]
